FAERS Safety Report 19163055 (Version 2)
Quarter: 2021Q2

REPORT INFORMATION
  Report Type: Spontaneous
  Country: CN (occurrence: CN)
  Receive Date: 20210421
  Receipt Date: 20210618
  Transmission Date: 20210717
  Serious: Yes (Other)
  Sender: FDA-Public Use
  Company Number: CN-ROCHE-2813987

PATIENT
  Age: 62 Year
  Sex: Female

DRUGS (20)
  1. DOXORUBICIN [Concomitant]
     Active Substance: DOXORUBICIN
     Dosage: R?DAEPOCH CONSOLIDATION THERAPY FOR 2 CYCLES
     Dates: start: 201903
  2. PREDNISONE. [Concomitant]
     Active Substance: PREDNISONE
     Dosage: R?DAEPOCH CHEMOTHERAPY + INTRATHECAL INJECTION (SPECIFIC DRUG UNKNOWN) CHEMOTHERAPY FOR 3 CYCLES
     Dates: start: 201812
  3. PREDNISONE. [Concomitant]
     Active Substance: PREDNISONE
     Dosage: R?DAEPOCH CONSOLIDATION THERAPY FOR 2 CYCLES
     Dates: start: 201903
  4. LENALIDOMIDE [Concomitant]
     Active Substance: LENALIDOMIDE
     Dosage: FOR 21 DAYS, 28 DAYS AS A CYCLE
     Dates: start: 202003, end: 202004
  5. MABTHERA [Suspect]
     Active Substance: RITUXIMAB
     Dosage: R?DAEPOCH CONSOLIDATION THERAPY FOR 2 CYCLES
     Route: 065
     Dates: start: 201903
  6. DOXORUBICIN [Concomitant]
     Active Substance: DOXORUBICIN
     Dosage: R?DAEPOCH CHEMOTHERAPY + INTRATHECAL INJECTION (SPECIFIC DRUG UNKNOWN) CHEMOTHERAPY FOR 3 CYCLES
     Dates: start: 201812
  7. VINCRISTINE [Concomitant]
     Active Substance: VINCRISTINE
     Indication: HIGH-GRADE B-CELL LYMPHOMA
     Dosage: R?CHOP CHEMOTHERAPY + INTRATHECAL INJECTION (SPECIFIC DRUG UNKNOWN) CHEMOTHERAPY FOR 1 CYCLE
     Dates: start: 201811
  8. CYCLOPHOSPHAMIDE. [Concomitant]
     Active Substance: CYCLOPHOSPHAMIDE
     Dosage: R?DAEPOCH CONSOLIDATION THERAPY FOR 2 CYCLES
     Dates: start: 201903
  9. CYCLOPHOSPHAMIDE. [Concomitant]
     Active Substance: CYCLOPHOSPHAMIDE
     Indication: HIGH-GRADE B-CELL LYMPHOMA
     Dosage: R?CHOP CHEMOTHERAPY + INTRATHECAL INJECTION (SPECIFIC DRUG UNKNOWN) CHEMOTHERAPY FOR 1 CYCLE
     Dates: start: 201811
  10. LENALIDOMIDE [Concomitant]
     Active Substance: LENALIDOMIDE
     Dates: start: 202010
  11. CYCLOPHOSPHAMIDE. [Concomitant]
     Active Substance: CYCLOPHOSPHAMIDE
     Dosage: R?DAEPOCH CHEMOTHERAPY + INTRATHECAL INJECTION (SPECIFIC DRUG UNKNOWN) CHEMOTHERAPY FOR 3 CYCLES
     Dates: start: 201812
  12. PREDNISONE. [Concomitant]
     Active Substance: PREDNISONE
     Indication: HIGH-GRADE B-CELL LYMPHOMA
     Dosage: R?CHOP CHEMOTHERAPY + INTRATHECAL INJECTION (SPECIFIC DRUG UNKNOWN) CHEMOTHERAPY FOR 1 CYCLE
     Dates: start: 201811
  13. ETOPOSIDE. [Concomitant]
     Active Substance: ETOPOSIDE
     Dosage: R?DAEPOCH CONSOLIDATION THERAPY FOR 2 CYCLES
     Dates: start: 201903
  14. LENALIDOMIDE [Concomitant]
     Active Substance: LENALIDOMIDE
     Indication: HIGH-GRADE B-CELL LYMPHOMA
     Dosage: FOR 21 DAYS, 28 DAYS AS A CYCLE
     Dates: start: 201910
  15. DOXORUBICIN [Concomitant]
     Active Substance: DOXORUBICIN
     Indication: HIGH-GRADE B-CELL LYMPHOMA
     Dosage: R?CHOP CHEMOTHERAPY + INTRATHECAL INJECTION (SPECIFIC DRUG UNKNOWN) CHEMOTHERAPY FOR 1 CYCLE
     Dates: start: 201811
  16. VINCRISTINE [Concomitant]
     Active Substance: VINCRISTINE
     Dosage: R?DAEPOCH CHEMOTHERAPY + INTRATHECAL INJECTION (SPECIFIC DRUG UNKNOWN) CHEMOTHERAPY FOR 3 CYCLES
     Dates: start: 201812
  17. ETOPOSIDE. [Concomitant]
     Active Substance: ETOPOSIDE
     Indication: HIGH-GRADE B-CELL LYMPHOMA
     Dosage: R?DAEPOCH CHEMOTHERAPY + INTRATHECAL INJECTION (SPECIFIC DRUG UNKNOWN) CHEMOTHERAPY FOR 3 CYCLES
     Dates: start: 201812
  18. MABTHERA [Suspect]
     Active Substance: RITUXIMAB
     Indication: HIGH-GRADE B-CELL LYMPHOMA
     Dosage: R?CHOP CHEMOTHERAPY + INTRATHECAL INJECTION (SPECIFIC DRUG UNKNOWN) CHEMOTHERAPY FOR 1 CYCLE
     Route: 065
     Dates: start: 201811
  19. MABTHERA [Suspect]
     Active Substance: RITUXIMAB
     Dosage: R?DAEPOCH CHEMOTHERAPY + INTRATHECAL INJECTION (SPECIFIC DRUG UNKNOWN) CHEMOTHERAPY FOR 3 CYCLES
     Route: 065
     Dates: start: 201812
  20. VINCRISTINE [Concomitant]
     Active Substance: VINCRISTINE
     Dosage: R?DAEPOCH CONSOLIDATION THERAPY FOR 2 CYCLES
     Dates: start: 201903

REACTIONS (4)
  - Off label use [Unknown]
  - Rash [Unknown]
  - Pneumonitis [Unknown]
  - Myelosuppression [Unknown]

NARRATIVE: CASE EVENT DATE: 201811
